FAERS Safety Report 8859114 (Version 1)
Quarter: 2012Q4

REPORT INFORMATION
  Report Type: Spontaneous
  Country: US (occurrence: None)
  Receive Date: 20121024
  Receipt Date: 20121024
  Transmission Date: 20130627
  Serious: Yes (Death)
  Sender: FDA-Public Use
  Company Number: None

PATIENT
  Age: 50 Year
  Sex: Male
  Weight: 97.98 kg

DRUGS (1)
  1. CIPROFLAXIN [Suspect]
     Indication: PROSTATITIS
     Dosage: 1 tablet twice daily po
7 pills/-10days
     Route: 048

REACTIONS (32)
  - Impaired work ability [None]
  - Muscular weakness [None]
  - Muscle spasms [None]
  - Muscle fatigue [None]
  - Pain in extremity [None]
  - Tendon pain [None]
  - Musculoskeletal stiffness [None]
  - Arthralgia [None]
  - Arthritis [None]
  - Arthropathy [None]
  - Joint crepitation [None]
  - Feeling abnormal [None]
  - Memory impairment [None]
  - Neuropathy peripheral [None]
  - Hearing impaired [None]
  - Insomnia [None]
  - Palpitations [None]
  - Gastrointestinal disorder [None]
  - Tendon pain [None]
  - Joint stiffness [None]
  - Musculoskeletal chest pain [None]
  - Fatigue [None]
  - Asthenia [None]
  - Tinnitus [None]
  - Temperature intolerance [None]
  - Photophobia [None]
  - Rash [None]
  - Myalgia [None]
  - Paraesthesia [None]
  - Tremor [None]
  - Paraesthesia [None]
  - Completed suicide [None]
